FAERS Safety Report 15291952 (Version 1)
Quarter: 2018Q3

REPORT INFORMATION
  Report Type: Report from Study
  Country: None (occurrence: AU)
  Receive Date: 20180817
  Receipt Date: 20180817
  Transmission Date: 20181010
  Serious: Yes (Other)
  Sender: FDA-Public Use
  Company Number: AU-ABBVIE-18S-008-2451712-00

PATIENT
  Sex: Male

DRUGS (3)
  1. ENZALUTAMIDE [Suspect]
     Active Substance: ENZALUTAMIDE
     Indication: PRODUCT USED FOR UNKNOWN INDICATION
     Route: 048
  2. LUCRIN DEPOT [Suspect]
     Active Substance: LEUPROLIDE ACETATE
     Indication: PROSTATE CANCER
     Route: 030
     Dates: start: 2012
  3. FOSAMAX [Concomitant]
     Active Substance: ALENDRONATE SODIUM
     Indication: OSTEOPOROSIS

REACTIONS (11)
  - Gait disturbance [Unknown]
  - Prostate cancer metastatic [Not Recovered/Not Resolved]
  - Adverse drug reaction [Recovered/Resolved]
  - Rib fracture [Recovered/Resolved]
  - Osteoporosis [Unknown]
  - Fatigue [Not Recovered/Not Resolved]
  - Intestinal polyp [Recovered/Resolved]
  - Hiatus hernia [Unknown]
  - Wisdom teeth removal [Recovering/Resolving]
  - Arthralgia [Unknown]
  - Joint stiffness [Unknown]
